FAERS Safety Report 4859809-2 (Version None)
Quarter: 2005Q4

REPORT INFORMATION
  Report Type: 
  Country: None (occurrence: None)
  Receive Date: 20051215
  Receipt Date: 20051130
  Transmission Date: 20060501
  Serious: Yes (Hospitalization)
  Sender: FDA-Public Use
  Company Number: 2005-02247

PATIENT
  Age: 67 Year
  Sex: Male

DRUGS (1)
  1. VELCADE [Suspect]
     Indication: MULTIPLE MYELOMA
     Dosage: 1.30 MG/M2,  INTRAVENOUS
     Route: 042
     Dates: start: 20051010

REACTIONS (4)
  - BACTERIA STOOL IDENTIFIED [None]
  - KLEBSIELLA SEPSIS [None]
  - PNEUMONIA KLEBSIELLA [None]
  - STAPHYLOCOCCAL SEPSIS [None]
